FAERS Safety Report 22623974 (Version 2)
Quarter: 2023Q2

REPORT INFORMATION
  Report Type: Report from Study
  Country: US (occurrence: US)
  Receive Date: 20230621
  Receipt Date: 20230623
  Transmission Date: 20230722
  Serious: Yes (Other)
  Sender: FDA-Public Use
  Company Number: US-ABBVIE-5298226

PATIENT
  Age: 70 Year
  Sex: Female

DRUGS (1)
  1. UBRELVY [Suspect]
     Active Substance: UBROGEPANT
     Indication: Product used for unknown indication
     Dosage: STRENGTH 100 MG
     Route: 048

REACTIONS (6)
  - Foot deformity [Unknown]
  - Pain [Not Recovered/Not Resolved]
  - Foot operation [Unknown]
  - Migraine [Not Recovered/Not Resolved]
  - Gait inability [Not Recovered/Not Resolved]
  - Toe amputation [Unknown]

NARRATIVE: CASE EVENT DATE: 20230609
